FAERS Safety Report 10249105 (Version 1)
Quarter: 2014Q2

REPORT INFORMATION
  Report Type: Spontaneous
  Country: ES (occurrence: None)
  Receive Date: 20140618
  Receipt Date: 20140618
  Transmission Date: 20141212
  Serious: Yes (Other)
  Sender: FDA-Public Use
  Company Number: FK201402374

PATIENT
  Age: 14 Year
  Sex: Female

DRUGS (1)
  1. ACICLOVIR (MANUFACTURER UNKNOWN) (ACICLOVIR) (ACICLOVIR) [Suspect]
     Indication: ENCEPHALITIS
     Route: 042

REACTIONS (1)
  - Hepatotoxicity [None]
